FAERS Safety Report 4975644-9 (Version None)
Quarter: 2006Q2

REPORT INFORMATION
  Report Type: 
  Country: None (occurrence: None)
  Receive Date: 20060418
  Receipt Date: 20060301
  Transmission Date: 20061013
  Serious: Yes (Disabling)
  Sender: FDA-Public Use
  Company Number: CA-GLAXOSMITHKLINE-A0596585A

PATIENT
  Age: 40 Year
  Sex: Female
  Weight: 57 kg

DRUGS (4)
  1. BEXXAR [Suspect]
     Indication: NON-HODGKIN'S LYMPHOMA
     Dosage: 450MG SINGLE DOSE
     Route: 042
     Dates: start: 20050412
  2. IODINE I 131 TOSITUMOMAB [Suspect]
     Indication: NON-HODGKIN'S LYMPHOMA
     Dosage: 5MCI SINGLE DOSE
     Route: 042
     Dates: start: 20050412
  3. BEXXAR [Suspect]
     Dosage: 450MG SINGLE DOSE
     Route: 042
     Dates: start: 20050421
  4. IODINE I 131 TOSITUMOMAB [Suspect]
     Dosage: 202MCI SINGLE DOSE
     Route: 042
     Dates: start: 20050421

REACTIONS (4)
  - COUGH [None]
  - DYSPNOEA [None]
  - OBSTRUCTIVE AIRWAYS DISORDER [None]
  - PNEUMONIA STREPTOCOCCAL [None]
